FAERS Safety Report 13547098 (Version 1)
Quarter: 2017Q2

REPORT INFORMATION
  Report Type: Spontaneous
  Country: CZ (occurrence: CZ)
  Receive Date: 20170515
  Receipt Date: 20170515
  Transmission Date: 20170830
  Serious: Yes (Hospitalization)
  Sender: FDA-Public Use
  Company Number: CZ-SA-2017SA083278

PATIENT
  Age: 69 Year
  Sex: Female

DRUGS (14)
  1. VEROSPIRON [Suspect]
     Active Substance: SPIRONOLACTONE
     Indication: HYPERTENSION
     Route: 048
  2. EGILOK [Concomitant]
     Active Substance: METOPROLOL TARTRATE
     Indication: HYPERTENSION
     Route: 048
  3. NEUROL (ALPRAZOLAM) [Concomitant]
     Active Substance: ALPRAZOLAM
     Route: 048
  4. HYDROCHLOROTHIAZIDE. [Suspect]
     Active Substance: HYDROCHLOROTHIAZIDE
     Indication: HYPERTENSION
     Route: 048
  5. AMLODIPIN [Suspect]
     Active Substance: AMLODIPINE BESYLATE
     Indication: HYPERTENSION
     Route: 048
  6. EBRANTIL [Concomitant]
     Active Substance: URAPIDIL
     Indication: HYPERTENSION
     Route: 048
  7. VEROSPIRON [Suspect]
     Active Substance: SPIRONOLACTONE
     Indication: HYPERTENSION
     Route: 048
  8. IRBESARTAN. [Suspect]
     Active Substance: IRBESARTAN
     Indication: HYPERTENSION
     Route: 048
  9. TELMISARTAN. [Concomitant]
     Active Substance: TELMISARTAN
     Indication: HYPERTENSION
     Route: 048
  10. MOXONIDINE [Concomitant]
     Active Substance: MOXONIDINE
     Indication: HYPERTENSION
     Dosage: DOSE 0.2 MG  IN MORNING AND 0.4 MG AT NIGHT
     Route: 048
  11. NEUROL (ALPRAZOLAM) [Concomitant]
     Active Substance: ALPRAZOLAM
     Route: 048
  12. AMLODIPIN [Suspect]
     Active Substance: AMLODIPINE BESYLATE
     Indication: HYPERTENSION
     Route: 048
  13. IBUPROFEN. [Suspect]
     Active Substance: IBUPROFEN
     Route: 048
  14. EBRANTIL [Concomitant]
     Active Substance: URAPIDIL
     Indication: HYPERTENSION
     Route: 048

REACTIONS (9)
  - Hypocalcaemia [Recovered/Resolved]
  - Blood potassium increased [Unknown]
  - Oedema peripheral [Recovered/Resolved]
  - Oedema [Unknown]
  - Hyponatraemia [Recovered/Resolved]
  - Erythema [Unknown]
  - Myalgia [Unknown]
  - Blood pressure fluctuation [Unknown]
  - Arthralgia [Unknown]

NARRATIVE: CASE EVENT DATE: 201608
